FAERS Safety Report 10055998 (Version 2)
Quarter: 2014Q2

REPORT INFORMATION
  Report Type: Spontaneous
  Country: US (occurrence: US)
  Receive Date: 20140403
  Receipt Date: 20140409
  Transmission Date: 20141212
  Serious: No
  Sender: FDA-Public Use
  Company Number: US-PFIZER INC-2014087811

PATIENT
  Age: 61 Year
  Sex: Female
  Weight: 84.99 kg

DRUGS (5)
  1. ELELYSO [Suspect]
     Indication: GAUCHER^S DISEASE
     Dosage: 5200 UNITS EVERY OTHER WEEK
     Dates: start: 20140204
  2. ELELYSO [Suspect]
     Dosage: 5200 UNITS EVERY OTHER WEEK
     Route: 042
     Dates: start: 20140218
  3. BENADRYL [Suspect]
     Indication: PREMEDICATION
     Dosage: 50 MG, UNK
  4. BENADRYL [Suspect]
     Dosage: 25 MG, UNK
     Route: 042
  5. TYLENOL [Concomitant]
     Indication: PREMEDICATION
     Dosage: UNK

REACTIONS (4)
  - Nasal congestion [Unknown]
  - Flushing [Unknown]
  - Infusion related reaction [Unknown]
  - Incorrect dose administered [Unknown]
